FAERS Safety Report 5798228-1 (Version None)
Quarter: 2008Q3

REPORT INFORMATION
  Report Type: 
  Country: None (occurrence: None)
  Receive Date: 20080702
  Receipt Date: 20080625
  Transmission Date: 20090109
  Serious: Yes (Other)
  Sender: FDA-Public Use
  Company Number: D0057706A

PATIENT
  Age: 38 Year
  Sex: Female
  Weight: 80 kg

DRUGS (9)
  1. LAPATINIB [Suspect]
     Dosage: 1250MG PER DAY
     Route: 048
     Dates: start: 20080524
  2. XELODA [Concomitant]
     Indication: BREAST CANCER
     Dosage: 2000MG TWICE PER DAY
     Route: 048
     Dates: start: 20080530
  3. AROMASIN [Concomitant]
     Indication: BREAST CANCER
     Dosage: 25MG PER DAY
     Route: 048
  4. RAMIPRIL [Concomitant]
     Dosage: 7.5MG PER DAY
     Route: 048
  5. ZOLADEX DEPOT [Concomitant]
     Route: 058
  6. SPIRONOLACTONE [Concomitant]
     Dosage: 50MG PER DAY
     Route: 048
  7. BISOPROLOL FUMARATE [Concomitant]
     Dosage: 5MG PER DAY
     Route: 048
  8. TORSEMIDE [Concomitant]
     Dosage: 2.5MG PER DAY
     Route: 048
  9. JODTHYROX [Concomitant]
     Dosage: 100UG PER DAY
     Route: 048

REACTIONS (3)
  - ASPARTATE AMINOTRANSFERASE INCREASED [None]
  - BLOOD BILIRUBIN INCREASED [None]
  - BLOOD LACTATE DEHYDROGENASE INCREASED [None]
